FAERS Safety Report 6340205-6 (Version None)
Quarter: 2009Q3

REPORT INFORMATION
  Report Type: 
  Country: None (occurrence: None)
  Receive Date: 20090902
  Receipt Date: 20090821
  Transmission Date: 20100115
  Serious: Yes (Hospitalization)
  Sender: FDA-Public Use
  Company Number: 239394K09USA

PATIENT
  Age: 71 Year
  Sex: Female
  Weight: 59 kg

DRUGS (1)
  1. REBIF [Suspect]
     Indication: MULTIPLE SCLEROSIS
     Dosage: 44 MCG, 3 IN 1 WEEKS, SUBCUTANEOUS
     Route: 058
     Dates: start: 20060315

REACTIONS (4)
  - HALLUCINATION, VISUAL [None]
  - MEMORY IMPAIRMENT [None]
  - MUSCULOSKELETAL DISORDER [None]
  - URINARY TRACT INFECTION [None]
